FAERS Safety Report 8185579-9 (Version None)
Quarter: 2012Q1

REPORT INFORMATION
  Report Type: 
  Country: None (occurrence: None)
  Receive Date: 20120305
  Receipt Date: 20120228
  Transmission Date: 20120608
  Serious: Yes (Other)
  Sender: FDA-Public Use
  Company Number: US-PFIZER INC-2012053214

PATIENT
  Sex: Female
  Weight: 68.027 kg

DRUGS (10)
  1. LYRICA [Suspect]
     Indication: MUSCULOSKELETAL PAIN
  2. ACETAMINOPHEN AND HYDROCODONE BITARTRATE [Concomitant]
     Dosage: 10/325 MG, UNK
  3. SAVELLA [Concomitant]
     Dosage: 100 MG
  4. LYRICA [Suspect]
     Indication: NECK PAIN
  5. ESTROGENS CONJUGATED [Concomitant]
     Indication: HORMONE LEVEL ABNORMAL
     Dosage: UNK
  6. XANAX [Concomitant]
     Indication: ANXIETY DISORDER
     Dosage: 1 MG, AS NEEDED
  7. SOMA [Concomitant]
     Dosage: 350 MG
  8. LYRICA [Suspect]
     Indication: SCIATICA
  9. LISINOPRIL [Concomitant]
     Indication: HYPERTENSION
     Dosage: UNK
  10. LYRICA [Suspect]
     Indication: BACK PAIN
     Dosage: 100 MG, 3X/DAY
     Route: 048
     Dates: start: 20110101, end: 20120101

REACTIONS (1)
  - ARTHRALGIA [None]
